FAERS Safety Report 21048450 (Version 15)
Quarter: 2023Q1

REPORT INFORMATION
  Report Type: Report from Study
  Country: IL (occurrence: None)
  Receive Date: 20220706
  Receipt Date: 20230201
  Transmission Date: 20230417
  Serious: Yes (Hospitalization)
  Sender: FDA-Public Use
  Company Number: IL-Eisai Medical Research-EC-2022-116212

PATIENT
  Age: 57 Year
  Sex: Female
  Weight: 88.5 kg

DRUGS (18)
  1. LENVATINIB [Suspect]
     Active Substance: LENVATINIB
     Indication: Endometrial cancer
     Dosage: STARTING AT 20 MILLIGRAM, FLUCTUATED DOSAGE, QD
     Route: 048
     Dates: start: 20220310, end: 20220427
  2. LENVATINIB [Suspect]
     Active Substance: LENVATINIB
     Route: 048
     Dates: start: 20220428, end: 20220606
  3. LENVATINIB [Suspect]
     Active Substance: LENVATINIB
     Route: 048
     Dates: start: 20210721, end: 20210721
  4. LENVATINIB [Suspect]
     Active Substance: LENVATINIB
     Dosage: STARTING AT 10 MILLIGRAM, FLUCTUATED DOSAGE
     Route: 048
     Dates: start: 20220804
  5. VIBOSTOLIMAB [Suspect]
     Active Substance: VIBOSTOLIMAB
     Indication: Endometrial cancer
     Dosage: VIBOSTOLIMAB 200 MG (+) PEMBROLIZUMAB 200 MG
     Route: 042
     Dates: start: 20220310, end: 20220407
  6. PEMBROLIZUMAB [Suspect]
     Active Substance: PEMBROLIZUMAB
     Dosage: VIBOSTOLIMAB 200 MG (+) PEMBROLIZUMAB 200 MG
     Route: 042
     Dates: start: 20220428
  7. BISOPROLOL FUMARATE [Concomitant]
     Active Substance: BISOPROLOL FUMARATE
     Dates: start: 201207
  8. EXFORGE [Concomitant]
     Active Substance: AMLODIPINE BESYLATE\VALSARTAN
     Dates: start: 200007
  9. OZEMPIC [Concomitant]
     Active Substance: SEMAGLUTIDE
     Route: 058
     Dates: start: 202201
  10. AMLODIPINE [Concomitant]
     Active Substance: AMLODIPINE BESYLATE
     Dates: start: 20220403
  11. ALLOPURINOL [Concomitant]
     Active Substance: ALLOPURINOL
     Dates: start: 201607
  12. SPIRONOLACTONE [Concomitant]
     Active Substance: SPIRONOLACTONE
     Dates: start: 200007, end: 20220403
  13. CIPROFIBRATE [Concomitant]
     Active Substance: CIPROFIBRATE
     Dates: start: 202007
  14. CRESTOR [Concomitant]
     Active Substance: ROSUVASTATIN CALCIUM
     Dates: start: 202007
  15. JARDIANCE [Concomitant]
     Active Substance: EMPAGLIFLOZIN
     Dates: start: 202201
  16. CLINDAMYCIN HYDROCHLORIDE [Concomitant]
     Active Substance: CLINDAMYCIN HYDROCHLORIDE
     Dates: start: 20220330, end: 20220401
  17. PARAFFIN [Concomitant]
     Active Substance: PARAFFIN
     Dates: start: 20220330, end: 20220408
  18. SEDURAL [Concomitant]
     Dates: start: 20220407, end: 20220409

REACTIONS (1)
  - Drug eruption [Recovered/Resolved with Sequelae]

NARRATIVE: CASE EVENT DATE: 20220414
